FAERS Safety Report 9144845 (Version 1)
Quarter: 2013Q1

REPORT INFORMATION
  Report Type: Spontaneous
  Country: US (occurrence: US)
  Receive Date: 20130307
  Receipt Date: 20130307
  Transmission Date: 20140127
  Serious: Yes (Hospitalization, Other)
  Sender: FDA-Public Use
  Company Number: US-AMGEN-USASP2013015133

PATIENT
  Age: 58 Year
  Sex: Male

DRUGS (1)
  1. ENBREL [Suspect]
     Indication: RHEUMATOID ARTHRITIS
     Dosage: 25 MG, 2 TIMES/WK
     Dates: start: 2006

REACTIONS (7)
  - Pulmonary embolism [Recovered/Resolved]
  - Lung disorder [Recovered/Resolved]
  - Carotid artery occlusion [Recovered/Resolved]
  - Shock [Recovered/Resolved]
  - Pulmonary fibrosis [Not Recovered/Not Resolved]
  - Rheumatoid lung [Not Recovered/Not Resolved]
  - Nodule [Not Recovered/Not Resolved]
